FAERS Safety Report 16240185 (Version 1)
Quarter: 2019Q2

REPORT INFORMATION
  Report Type: Report from Study
  Country: US (occurrence: US)
  Receive Date: 20190425
  Receipt Date: 20190425
  Transmission Date: 20190711
  Serious: Yes (Other)
  Sender: FDA-Public Use
  Company Number: US-ALLERGAN-1915064US

PATIENT
  Sex: Male

DRUGS (2)
  1. DEX 0.7MG (9632X) (DEXAMETHASONE) [Suspect]
     Active Substance: DEXAMETHASONE
     Indication: MACULAR DEGENERATION
     Dosage: 0.7 MG, SINGLE
     Route: 031
     Dates: start: 201810, end: 201810
  2. DEX 0.7MG (9632X) (DEXAMETHASONE) [Suspect]
     Active Substance: DEXAMETHASONE
     Indication: EYE SWELLING

REACTIONS (2)
  - Surgery [Unknown]
  - Off label use [Unknown]

NARRATIVE: CASE EVENT DATE: 201904
